FAERS Safety Report 8060101 (Version 4)
Quarter: 2015Q4

REPORT INFORMATION
  Report Type: Spontaneous
  Country: US (occurrence: US)
  Receive Date: 20110729
  Receipt Date: 20151124
  Transmission Date: 20160305
  Serious: Yes (Hospitalization, Other)
  Sender: FDA-Public Use
  Company Number: US-BAYER-2011-065820

PATIENT
  Age: 28 Year
  Sex: Female
  Weight: 82 kg

DRUGS (2)
  1. DILAUDID [Concomitant]
     Active Substance: HYDROMORPHONE HYDROCHLORIDE
     Indication: PAIN
     Dosage: TWICE
  2. YAZ [Suspect]
     Active Substance: DROSPIRENONE\ETHINYL ESTRADIOL
     Indication: CONTRACEPTION
     Dosage: UNK
     Dates: start: 20090622, end: 20090727

REACTIONS (10)
  - Colitis ischaemic [None]
  - Injury [None]
  - Anhedonia [None]
  - Abdominal pain lower [None]
  - Haematochezia [None]
  - Thrombosis mesenteric vessel [None]
  - Embolism arterial [None]
  - Pain [None]
  - Emotional distress [None]
  - Diarrhoea [None]

NARRATIVE: CASE EVENT DATE: 20090727
